FAERS Safety Report 16892930 (Version 1)
Quarter: 2019Q4

REPORT INFORMATION
  Report Type: Report from Study
  Country: None (occurrence: US)
  Receive Date: 20191007
  Receipt Date: 20191007
  Transmission Date: 20200122
  Serious: Yes (Other)
  Sender: FDA-Public Use
  Company Number: US-ABBVIE-19K-163-2949770-00

PATIENT
  Age: 40 Year

DRUGS (1)
  1. ORILISSA [Suspect]
     Active Substance: ELAGOLIX SODIUM
     Indication: ENDOMETRIOSIS
     Route: 048
     Dates: start: 2019, end: 2019

REACTIONS (7)
  - Pelvic pain [Unknown]
  - Adenomyosis [Unknown]
  - Drug ineffective [Unknown]
  - Muscle spasms [Unknown]
  - Uterine scar [Unknown]
  - Hysterectomy [Unknown]
  - Oophorectomy [Unknown]

NARRATIVE: CASE EVENT DATE: 2019
